FAERS Safety Report 5027143-6 (Version None)
Quarter: 2006Q2

REPORT INFORMATION
  Report Type: 
  Country: None (occurrence: None)
  Receive Date: 20060501
  Receipt Date: 20060127
  Transmission Date: 20061013
  Serious: No
  Sender: FDA-Public Use
  Company Number: 2006PV007756

PATIENT
  Age: 51 Year
  Sex: Female
  Weight: 158.759 kg

DRUGS (6)
  1. SYMLIN INJECTION (0.6 MG/ML) [Suspect]
     Dosage: 60 MCG; TID; SC
     Route: 058
     Dates: start: 20060112
  2. AVANDIA [Concomitant]
  3. METFORMIN [Concomitant]
  4. HUMALOG [Concomitant]
  5. LANTUS [Concomitant]
  6. NAPROXEN [Concomitant]

REACTIONS (3)
  - ARTHRALGIA [None]
  - MYALGIA [None]
  - NAUSEA [None]
